FAERS Safety Report 16096923 (Version 7)
Quarter: 2019Q3

REPORT INFORMATION
  Report Type: Spontaneous
  Country: CA (occurrence: CA)
  Receive Date: 20190320
  Receipt Date: 20190701
  Transmission Date: 20191004
  Serious: Yes (Hospitalization)
  Sender: FDA-Public Use
  Company Number: CA-PFIZER INC-2018469319

PATIENT
  Age: 57 Year
  Sex: Female

DRUGS (9)
  1. XELJANZ [Suspect]
     Active Substance: TOFACITINIB CITRATE
     Dosage: 5 MG, 2X/DAY
     Route: 048
     Dates: start: 20190402, end: 201906
  2. TYLENOL [Concomitant]
     Active Substance: ACETAMINOPHEN
     Indication: PAIN
     Dosage: UNK
  3. METHOTREXATE. [Concomitant]
     Active Substance: METHOTREXATE
     Indication: COLITIS ULCERATIVE
     Dosage: 15 MG, UNK
     Dates: end: 2018
  4. XELJANZ [Suspect]
     Active Substance: TOFACITINIB CITRATE
     Indication: COLITIS ULCERATIVE
     Dosage: 10 MG, 2X/DAY
     Route: 048
     Dates: start: 20181115, end: 20190313
  5. ESTRADOT [Concomitant]
     Active Substance: ESTRADIOL
     Indication: OESTROGEN REPLACEMENT THERAPY
     Dosage: 75 UG, 2X/WEEK
     Route: 062
  6. VITAMIN D 2000 [Concomitant]
     Active Substance: VITAMIN D NOS
     Dosage: 1000 UNITS, DAILY
     Route: 048
     Dates: start: 20181121
  7. CALCIUM CARBONATE. [Concomitant]
     Active Substance: CALCIUM CARBONATE
     Dosage: 500 MG, DAILY
     Route: 048
     Dates: start: 20181121
  8. PANTOPRAZOLE [Concomitant]
     Active Substance: PANTOPRAZOLE
     Dosage: 40 MG, DAILY
     Route: 048
     Dates: start: 20181121
  9. PREDNISONE. [Concomitant]
     Active Substance: PREDNISONE
     Dosage: 40 MG, DAILY (TAPER DOWN 5MG EACH WEEK FOR 8 WEEKS)
     Route: 048
     Dates: start: 20181121, end: 2018

REACTIONS (17)
  - Haematochezia [Recovering/Resolving]
  - Rhinorrhoea [Unknown]
  - Alopecia [Recovering/Resolving]
  - Stress [Unknown]
  - Serum ferritin decreased [Unknown]
  - Gouty tophus [Unknown]
  - Pain of skin [Not Recovered/Not Resolved]
  - Gait disturbance [Unknown]
  - Headache [Recovering/Resolving]
  - Diffuse alopecia [Recovering/Resolving]
  - Vitamin B12 decreased [Unknown]
  - Parosmia [Unknown]
  - Arthralgia [Not Recovered/Not Resolved]
  - Abdominal distension [Not Recovered/Not Resolved]
  - Abdominal pain [Recovering/Resolving]
  - Intentional dose omission [Unknown]
  - Wheezing [Not Recovered/Not Resolved]

NARRATIVE: CASE EVENT DATE: 201812
